FAERS Safety Report 9406795 (Version 1)
Quarter: 2013Q3

REPORT INFORMATION
  Report Type: Spontaneous
  Country: US (occurrence: US)
  Receive Date: 20130718
  Receipt Date: 20130718
  Transmission Date: 20140515
  Serious: Yes (Hospitalization, Other)
  Sender: FDA-Public Use
  Company Number: US-BAYER-2013-085681

PATIENT
  Age: 23 Year
  Sex: Female

DRUGS (1)
  1. MIRENA [Suspect]
     Indication: CONTRACEPTION
     Dosage: 20 ?G/D, CONT
     Route: 015
     Dates: start: 20090114, end: 20130708

REACTIONS (6)
  - Genital haemorrhage [None]
  - Infection [None]
  - Smear cervix abnormal [None]
  - Precancerous cells present [None]
  - Pregnancy with contraceptive device [None]
  - Drug ineffective [None]
